FAERS Safety Report 5542679-7 (Version None)
Quarter: 2007Q4

REPORT INFORMATION
  Report Type: 
  Country: None (occurrence: None)
  Receive Date: 20071210
  Receipt Date: 20071128
  Transmission Date: 20080405
  Serious: Yes (Hospitalization, Other)
  Sender: FDA-Public Use
  Company Number: KR-PFIZER INC-2007084869

PATIENT
  Sex: Male
  Weight: 63 kg

DRUGS (5)
  1. LYRICA [Suspect]
     Indication: EPILEPSY
     Route: 048
  2. CARBAMAZEPINE [Suspect]
     Indication: EPILEPSY
     Dosage: DAILY DOSE:1000MG
     Route: 048
  3. VALPROIC ACID [Concomitant]
     Indication: EPILEPSY
     Dosage: DAILY DOSE:1200MG
     Route: 048
     Dates: start: 20070129, end: 20070427
  4. TOPIRAMATE [Concomitant]
     Indication: EPILEPSY
     Dosage: DAILY DOSE:100MG
     Route: 048
     Dates: start: 20070129, end: 20070427
  5. ASTRIX [Concomitant]
     Indication: CEREBRAL INFARCTION
     Dosage: DAILY DOSE:100MG
     Route: 048
     Dates: start: 20070129, end: 20070427

REACTIONS (5)
  - ANTICONVULSANT DRUG LEVEL INCREASED [None]
  - BLOOD SODIUM DECREASED [None]
  - DIZZINESS [None]
  - DRUG INEFFECTIVE [None]
  - SPINAL OPERATION [None]
